FAERS Safety Report 21836708 (Version 1)
Quarter: 2023Q1

REPORT INFORMATION
  Report Type: Spontaneous
  Country: US (occurrence: US)
  Receive Date: 20230109
  Receipt Date: 20230109
  Transmission Date: 20230418
  Serious: No
  Sender: FDA-Public Use
  Company Number: US-Melinta Therapeutics, LLC-US-MLNT-22-00206

PATIENT

DRUGS (4)
  1. KIMYRSA [Suspect]
     Active Substance: ORITAVANCIN DIPHOSPHATE
     Indication: Device related infection
     Dosage: FIRST DOSE GIVEN KIMYRSA
     Route: 041
  2. ORBACTIV [Suspect]
     Active Substance: ORITAVANCIN
     Indication: Device related infection
     Dosage: SECOND DOSE GIVEN ORBACTIV
     Route: 041
  3. ORBACTIV [Suspect]
     Active Substance: ORITAVANCIN
     Indication: Arthritis infective
  4. ZYRTEC [Concomitant]
     Active Substance: CETIRIZINE HYDROCHLORIDE
     Indication: Premedication
     Dosage: NOT PROVIDED
     Route: 065

REACTIONS (5)
  - Infusion related reaction [Unknown]
  - Dizziness [Unknown]
  - Blood pressure decreased [Unknown]
  - Multiple use of single-use product [Unknown]
  - Off label use [Unknown]
